FAERS Safety Report 16001329 (Version 1)
Quarter: 2019Q1

REPORT INFORMATION
  Report Type: Spontaneous
  Country: US (occurrence: US)
  Receive Date: 20190225
  Receipt Date: 20190225
  Transmission Date: 20190418
  Serious: Yes (Other)
  Sender: FDA-Public Use
  Company Number: US-ALLERGAN-1907392US

PATIENT
  Sex: Female

DRUGS (1)
  1. ARMOUR THYROID [Suspect]
     Active Substance: THYROID, PORCINE
     Indication: HYPOTHYROIDISM
     Dosage: 90 MG, QD
     Route: 065
     Dates: end: 201902

REACTIONS (3)
  - Thyroid hormones increased [Unknown]
  - Cerebrovascular accident [Unknown]
  - Paraesthesia [Unknown]

NARRATIVE: CASE EVENT DATE: 201902
